FAERS Safety Report 14314481 (Version 1)
Quarter: 2017Q4

REPORT INFORMATION
  Report Type: Spontaneous
  Country: US (occurrence: US)
  Receive Date: 20171221
  Receipt Date: 20171221
  Transmission Date: 20180321
  Serious: No
  Sender: FDA-Public Use
  Company Number: US-ELI_LILLY_AND_COMPANY-US201712007089

PATIENT
  Age: 71 Year
  Sex: Female

DRUGS (1)
  1. TRULICITY [Suspect]
     Active Substance: DULAGLUTIDE
     Indication: PRODUCT USED FOR UNKNOWN INDICATION
     Dosage: 1.5 MG, UNKNOWN
     Route: 065

REACTIONS (6)
  - Limb discomfort [Unknown]
  - Muscle strain [Unknown]
  - Musculoskeletal pain [Unknown]
  - Irritability [Unknown]
  - Drug dose omission [Unknown]
  - Discomfort [Unknown]

NARRATIVE: CASE EVENT DATE: 20171214
